FAERS Safety Report 21121647 (Version 2)
Quarter: 2022Q3

REPORT INFORMATION
  Report Type: Spontaneous
  Country: US (occurrence: US)
  Receive Date: 20220722
  Receipt Date: 20220801
  Transmission Date: 20221026
  Serious: No
  Sender: FDA-Public Use
  Company Number: CID000000000026528

PATIENT
  Age: 44 Year
  Sex: Female
  Weight: 86.18 kg

DRUGS (3)
  1. QVAR REDIHALER [Suspect]
     Active Substance: BECLOMETHASONE DIPROPIONATE
     Indication: Asthma
     Dosage: 2 PUFFS IN THE MORNING AND 2 PUFFS AT NIGHT
     Route: 065
     Dates: start: 202203
  2. QVAR REDIHALER [Suspect]
     Active Substance: BECLOMETHASONE DIPROPIONATE
     Dosage: 1 PUFF IN THE MORNING AND 1 PUFF AT NIGHT
     Route: 065
     Dates: start: 2022
  3. PROAIR HFA [Interacting]
     Active Substance: ALBUTEROL SULFATE
     Indication: Asthma
     Route: 065

REACTIONS (6)
  - Malaise [Unknown]
  - Dyspnoea [Unknown]
  - Device delivery system issue [Unknown]
  - Device defective [Unknown]
  - Incorrect dose administered by device [Unknown]
  - Product residue present [Unknown]

NARRATIVE: CASE EVENT DATE: 20220101
